FAERS Safety Report 6253805-9 (Version None)
Quarter: 2009Q3

REPORT INFORMATION
  Report Type: 
  Country: None (occurrence: None)
  Receive Date: 20090702
  Receipt Date: 20070604
  Transmission Date: 20100115
  Serious: Yes (Other)
  Sender: FDA-Public Use
  Company Number: US-ASTRAZENECA-2006UW23965

PATIENT
  Age: 9705 Day
  Sex: Female
  Weight: 84.8 kg

DRUGS (40)
  1. SEROQUEL [Suspect]
     Indication: ANXIETY
     Dosage: 50-600 MG
     Route: 048
  2. SEROQUEL [Suspect]
     Dosage: 25-250 MG
     Route: 048
     Dates: start: 20040331
  3. HYDROCHLOROTHIAZIDE [Concomitant]
     Dates: start: 20051005, end: 20061023
  4. CRESTOR [Concomitant]
     Dosage: 10 MG TAKE 1-2 TABLETS
     Dates: start: 20041230, end: 20061023
  5. TRAZODONE HCL [Concomitant]
     Dosage: 100 MG
     Route: 048
     Dates: start: 20040306
  6. METFORMIN HCL [Concomitant]
     Dosage: 500 MG TWO TIMES A DAY, 850 MG TAKE 1 TABLET(S)
     Route: 048
     Dates: start: 20040520
  7. NADOLOL [Concomitant]
     Dosage: 40 MG, 20 MG DAILY
     Route: 048
     Dates: start: 20040203
  8. PROCHLORPERAZINE [Concomitant]
     Dosage: 10 MG TAKE 1 TABLET(S)
     Dates: start: 20040616
  9. LEXAPRO [Concomitant]
     Dosage: 20 MG TAKE 1 AND A HALF TABLET
     Dates: start: 20040305
  10. PRILOSEC [Concomitant]
     Dosage: 20 MG TAKE 1 TABLET(S)
     Dates: start: 20040619
  11. HUMULIN R [Concomitant]
     Dosage: 70/30 VIAL INJECT 15 UNITS TWICE DAILY
     Dates: start: 20040619
  12. RISPERDAL [Concomitant]
     Dosage: 2 MG, 4 MG
     Dates: start: 20040107
  13. ABILIFY [Concomitant]
     Dosage: 15 MG TAKE HALF TAB
     Dates: start: 20040624
  14. EFFEXOR XR [Concomitant]
     Dates: start: 20040630
  15. NAPROXEN SODIUM [Concomitant]
     Dates: start: 20040719
  16. HYDROCODONE BITARTRATE + ACETAMINOPHEN [Concomitant]
     Dosage: 7.5-75, 5-500 TAKE 1 TABLET
     Route: 048
     Dates: start: 20040124
  17. CYCLOBENZAPRINE [Concomitant]
     Route: 048
     Dates: start: 20040730
  18. RA NICOTINE [Concomitant]
     Dosage: 21 MG, 14 MG, 7 MG, EVERY 24 HOURS APPLY 1 PATCH TOPICALLY
     Dates: start: 20040810
  19. HYDROMORPHONE [Concomitant]
     Dosage: 2 MG TABLET TAKE 1-2 TABLETS
     Dates: start: 20040921
  20. MORPHINE SULFATE [Concomitant]
     Route: 048
     Dates: start: 20041008
  21. ALBUTEROL [Concomitant]
     Dosage: 2 PUFFS EVERY FOUR HOURS, 90 MCG INHALER
     Dates: start: 20031024
  22. METHADONE HCL [Concomitant]
     Dosage: 10 MG TABLET TAKE 1 AND A HALF TABLET
     Dates: start: 20050128
  23. LORAZEPAM [Concomitant]
     Indication: MUSCLE SPASMS
     Dosage: 1 MG TAB AS REQUIRED, 0.5 MG DAILY, 1-2 MG TWO TIMES A DAY
     Route: 048
     Dates: start: 20040102
  24. DILANTIN [Concomitant]
     Dosage: 30 MG DAILY, 300-500 MG DAILY, 200 MG TWO TIMES A DAY AND 100 MG AS DIRECTED
     Dates: start: 20041016
  25. LAMICTAL [Concomitant]
     Dates: start: 20041022
  26. PROTONIX [Concomitant]
     Dates: start: 20031024
  27. IBUPROFEN [Concomitant]
     Dosage: 800 MG HALF AT NIGHT AND 800 MG HALF EVERY FOUR-SIX HOURS, 400 MG, 200 MG EVERY MORNING
     Dates: start: 20031127
  28. ACIPHEX [Concomitant]
     Dates: start: 20061206
  29. MAGNESIUM CITRATE [Concomitant]
     Dosage: 2 OUNCES EVERY FOUR HOURS
     Dates: start: 20050823
  30. ADVAIR HFA [Concomitant]
     Dosage: 250/50 ONE INHALATION TWO TIMES A DAY
     Dates: start: 20031024
  31. PULMICORT-100 [Concomitant]
     Dosage: 2 PUFFS THREE TIMES A DAY
     Dates: start: 20031031
  32. PERCOCET [Concomitant]
     Dosage: 5 MG, 5/325 TABLET TAKE 1-2 TABLETS
     Dates: start: 20031127
  33. IMODIUM A-D [Concomitant]
     Dates: start: 20050212
  34. ATROVENT [Concomitant]
     Dosage: 2 PUFFS FOUR TIMES A DAY AS REQUIRED
     Dates: start: 20031024
  35. ZANTAC [Concomitant]
     Route: 048
     Dates: start: 19970707
  36. ENALAPRIL [Concomitant]
     Dates: start: 20051005
  37. VIOXX [Concomitant]
     Dates: start: 20040722
  38. HALOPERIDOL [Concomitant]
  39. HYCOTUSS [Concomitant]
  40. PHENERGAN [Concomitant]
     Dates: start: 20051005

REACTIONS (5)
  - CHOLECYSTITIS CHRONIC [None]
  - DIABETES MELLITUS [None]
  - DIABETES MELLITUS INADEQUATE CONTROL [None]
  - PANCREATITIS [None]
  - PANCREATITIS ACUTE [None]
